FAERS Safety Report 5318648-9 (Version None)
Quarter: 2007Q2

REPORT INFORMATION
  Report Type: 
  Country: None (occurrence: None)
  Receive Date: 20070508
  Receipt Date: 20070427
  Transmission Date: 20071010
  Serious: Yes (Hospitalization)
  Sender: FDA-Public Use
  Company Number: PHEH2007US04645

PATIENT
  Age: 52 Year
  Sex: Female

DRUGS (2)
  1. ZELNORM [Suspect]
     Indication: BOWEL MOVEMENT IRREGULARITY
     Route: 048
     Dates: start: 20061201, end: 20070201
  2. ACTOS ^LILLY^ [Concomitant]
     Indication: DIABETES MELLITUS

REACTIONS (6)
  - CARDIAC DISORDER [None]
  - CATHETERISATION CARDIAC ABNORMAL [None]
  - FEELING ABNORMAL [None]
  - HEART RATE DECREASED [None]
  - LOSS OF CONSCIOUSNESS [None]
  - OXYGEN SATURATION DECREASED [None]
